FAERS Safety Report 5395212-7 (Version None)
Quarter: 2007Q3

REPORT INFORMATION
  Report Type: 
  Country: None (occurrence: None)
  Receive Date: 20070713
  Receipt Date: 20070328
  Transmission Date: 20080115
  Serious: Yes (Hospitalization)
  Sender: FDA-Public Use
  Company Number: US-JNJFOC-20061102077

PATIENT
  Age: 27 Year
  Sex: Female
  Weight: 63.5036 kg

DRUGS (5)
  1. ORTHO EVRA [Suspect]
     Indication: CONTRACEPTION
     Dates: start: 20020601, end: 20021018
  2. DEPAKOTE [Concomitant]
  3. MIGRAINE [Concomitant]
  4. MIDRIN (MIDRID) [Concomitant]
  5. EPIPEN [Concomitant]

REACTIONS (1)
  - DEEP VEIN THROMBOSIS [None]
